FAERS Safety Report 8194175 (Version 3)
Quarter: 2012Q4

REPORT INFORMATION
  Report Type: 
  Country: CA (occurrence: CA)
  Receive Date: 20111021
  Receipt Date: 20121203
  Transmission Date: 20130627
  Serious: Yes (Hospitalization, Disabling, Other)
  Sender: FDA-Public Use
  Company Number: CA-ASTRAZENECA-2011SE62178

PATIENT
  Sex: Male
  Weight: 2.6 kg

DRUGS (9)
  1. SEROQUEL [Suspect]
     Indication: PSYCHOTIC DISORDER
     Route: 064
  2. SEROQUEL [Suspect]
     Indication: PSYCHOTIC DISORDER
     Route: 064
  3. CIPRALEX [Suspect]
     Route: 064
  4. NORTRIPTYLINE [Suspect]
     Route: 064
  5. GABAPENTIN [Suspect]
     Route: 064
  6. BENZTROPINE [Suspect]
     Route: 064
  7. ZOPICLONE [Suspect]
     Route: 064
  8. RABEPRAZOLE [Suspect]
     Route: 064
  9. METHADONE [Suspect]
     Route: 064

REACTIONS (8)
  - Trismus [Recovered/Resolved]
  - Diarrhoea neonatal [Recovered/Resolved]
  - Poor quality sleep [Recovered/Resolved]
  - Hypertonia neonatal [Recovered/Resolved]
  - Extrapyramidal disorder [Recovered/Resolved]
  - Feeding disorder neonatal [Recovered/Resolved]
  - Foetal exposure during pregnancy [Recovered/Resolved]
  - Neonatal tachypnoea [Recovered/Resolved]
